FAERS Safety Report 24382730 (Version 1)
Quarter: 2024Q4

REPORT INFORMATION
  Report Type: Spontaneous
  Country: US (occurrence: US)
  Receive Date: 20241001
  Receipt Date: 20241001
  Transmission Date: 20250115
  Serious: Yes (Other)
  Sender: MYLAN
  Company Number: US-MYLANLABS-2024M1086639

PATIENT
  Age: 76 Year
  Sex: Female

DRUGS (7)
  1. DAPSONE [Suspect]
     Active Substance: DAPSONE
     Indication: Lichen planus pemphigoides
     Dosage: UNK
     Route: 065
  2. PREDNISONE [Concomitant]
     Active Substance: PREDNISONE
     Indication: Lichen planus pemphigoides
     Dosage: UNK
     Route: 065
  3. CLOBETASOL [Concomitant]
     Active Substance: CLOBETASOL
     Indication: Rash pruritic
     Dosage: UNK
     Route: 061
  4. CLOBETASOL [Concomitant]
     Active Substance: CLOBETASOL
     Indication: Papule
  5. CLOBETASOL [Concomitant]
     Active Substance: CLOBETASOL
     Indication: Blister
  6. TRIAMCINOLONE [Concomitant]
     Active Substance: TRIAMCINOLONE
     Indication: Papule
     Dosage: UNK UNK, BID
     Route: 061
  7. TRIAMCINOLONE [Concomitant]
     Active Substance: TRIAMCINOLONE
     Indication: Blister

REACTIONS (1)
  - Dizziness [Unknown]
